FAERS Safety Report 7222636-5 (Version None)
Quarter: 2011Q1

REPORT INFORMATION
  Report Type: 
  Country: None (occurrence: None)
  Receive Date: 20110103
  Receipt Date: 20101220
  Transmission Date: 20110831
  Serious: Yes (Hospitalization)
  Sender: FDA-Public Use
  Company Number: 023950

PATIENT
  Sex: Male

DRUGS (11)
  1. ROTIGOTINE (ROTIGOTINE) [Suspect]
     Indication: PARKINSON'S DISEASE
     Dosage: 4.5MG-36.0MG, TRANSDERMAL, 36 MG, MAINTENANCE DOSE, TRANSDERMAL; 31.5 MG , TRANSDERMAL
     Route: 062
     Dates: start: 20100506, end: 20101208
  2. ROTIGOTINE (ROTIGOTINE) [Suspect]
     Indication: PARKINSON'S DISEASE
     Dosage: 4.5MG-36.0MG, TRANSDERMAL, 36 MG, MAINTENANCE DOSE, TRANSDERMAL; 31.5 MG , TRANSDERMAL
     Route: 062
     Dates: start: 20101209, end: 20101210
  3. ROTIGOTINE (ROTIGOTINE) [Suspect]
     Indication: PARKINSON'S DISEASE
     Dosage: 4.5MG-36.0MG, TRANSDERMAL, 36 MG, MAINTENANCE DOSE, TRANSDERMAL; 31.5 MG , TRANSDERMAL
     Route: 062
     Dates: start: 20100309, end: 20100505
  4. BISOPROLOL FUMARATE [Concomitant]
  5. ALLOPURINOL [Concomitant]
  6. BENSERAZIDE HYDROCHLORIDE W/LEVODOPA [Concomitant]
  7. ASPIRIN [Concomitant]
  8. ENTACAPONE [Concomitant]
  9. VALSARTAN [Concomitant]
  10. ATORVASTATIN CALCIUM [Concomitant]
  11. SELEGILINE HYDROCHLORIDE [Concomitant]

REACTIONS (5)
  - MIDDLE INSOMNIA [None]
  - PARANOIA [None]
  - DELIRIUM [None]
  - HALLUCINATIONS, MIXED [None]
  - POOR QUALITY SLEEP [None]
